FAERS Safety Report 4457978-X (Version None)
Quarter: 2004Q3

REPORT INFORMATION
  Report Type: 
  Country: None (occurrence: None)
  Receive Date: 20040922
  Receipt Date: 20040906
  Transmission Date: 20050211
  Serious: Yes (Hospitalization)
  Sender: FDA-Public Use
  Company Number: EWC040940583

PATIENT
  Age: 63 Year
  Sex: Male
  Weight: 72 kg

DRUGS (8)
  1. GEMCITABINE HYDROCHLORIDE-IV (GEMCITABINE) [Suspect]
     Indication: NON-SMALL CELL LUNG CANCER
     Dosage: 1700 MG
     Dates: start: 20040319, end: 20040319
  2. VINORELBINE TARTRATE [Concomitant]
  3. DOLASETRON [Concomitant]
  4. PROSPAN (HEDERA HELIX) [Concomitant]
  5. COUGH SYRUP [Concomitant]
  6. CODEIN (CODEINE PHOSPHATE HEMIHYDRATE) [Concomitant]
  7. TYLENOL [Concomitant]
  8. FENATUSSIN [Concomitant]

REACTIONS (1)
  - LOBAR PNEUMONIA [None]
